FAERS Safety Report 17761095 (Version 2)
Quarter: 2020Q2

REPORT INFORMATION
  Report Type: Spontaneous
  Country: US (occurrence: US)
  Receive Date: 20200508
  Receipt Date: 20200511
  Transmission Date: 20200714
  Serious: Yes (Hospitalization, Other)
  Sender: FDA-Public Use
  Company Number: US-PFIZER INC-2020183051

PATIENT
  Sex: Female

DRUGS (1)
  1. CELEBREX [Suspect]
     Active Substance: CELECOXIB
     Dosage: UNK, ALTERNATE DAY (EVERY OTHER DAY NOW)

REACTIONS (5)
  - Malaise [Unknown]
  - Asthenia [Unknown]
  - Pain [Unknown]
  - Depression [Unknown]
  - Rheumatoid arthritis [Unknown]
